FAERS Safety Report 24255074 (Version 1)
Quarter: 2024Q3

REPORT INFORMATION
  Report Type: Spontaneous
  Country: ES (occurrence: None)
  Receive Date: 20240827
  Receipt Date: 20240827
  Transmission Date: 20241016
  Serious: Yes (Hospitalization)
  Sender: ASTRAZENECA
  Company Number: 2024A194918

PATIENT
  Age: 54 Year
  Sex: Female

DRUGS (6)
  1. OMEPRAZOLE [Suspect]
     Active Substance: OMEPRAZOLE
  2. OLANZAPINE [Suspect]
     Active Substance: OLANZAPINE
     Indication: Major depression
     Dosage: X 200 MILLIGRAM IN 1 TOTAL
     Route: 048
     Dates: start: 20240701, end: 20240701
  3. LORAZEPAM [Suspect]
     Active Substance: LORAZEPAM
     Indication: Major depression
  4. VENALAFAXINE HYDROCHLORIDE [Concomitant]
     Dosage: 225 MILLIGRAM IN 1 DAY// 225 MILLIGRAM
     Route: 048
     Dates: start: 20171027
  5. SIMVASTATIN [Concomitant]
     Active Substance: SIMVASTATIN
     Dosage: 10 MG IN 1 DAY// 10 MG
     Route: 048
     Dates: start: 20221005
  6. MOMETASONE [Concomitant]
     Active Substance: MOMETASONE
     Dates: start: 20221005

REACTIONS (4)
  - Pneumonia aspiration [Recovered/Resolved]
  - Intentional overdose [Recovered/Resolved]
  - Depressed level of consciousness [Recovered/Resolved]
  - Sedation [Unknown]

NARRATIVE: CASE EVENT DATE: 20240701
